FAERS Safety Report 19818234 (Version 2)
Quarter: 2021Q4

REPORT INFORMATION
  Report Type: Spontaneous
  Country: CA (occurrence: CA)
  Receive Date: 20210911
  Receipt Date: 20211030
  Transmission Date: 20220304
  Serious: Yes (Hospitalization)
  Sender: FDA-Public Use
  Company Number: CA-TEVA-2021-CA-1949626

PATIENT
  Age: 36 Year
  Sex: Male

DRUGS (9)
  1. ETOPOSIDE [Suspect]
     Active Substance: ETOPOSIDE
     Indication: Product used for unknown indication
     Dosage: 388 MILLIGRAM DAILY;
     Route: 065
  2. CYTARABINE [Suspect]
     Active Substance: CYTARABINE
     Indication: Product used for unknown indication
     Dosage: 776 MILLIGRAM DAILY;
     Route: 065
  3. FRAGMIN [Concomitant]
     Active Substance: DALTEPARIN SODIUM
  4. LASIX [Concomitant]
     Active Substance: FUROSEMIDE
  5. NEXAVAR [Concomitant]
     Active Substance: SORAFENIB
  6. PANTOPRAZOLE SODIUM [Concomitant]
     Active Substance: PANTOPRAZOLE SODIUM
  7. TYLENOL [Concomitant]
     Active Substance: ACETAMINOPHEN
  8. FUROSEMIDE [Concomitant]
     Active Substance: FUROSEMIDE
     Route: 065
  9. SORAFENIB [Concomitant]
     Active Substance: SORAFENIB

REACTIONS (3)
  - Bone marrow failure [Unknown]
  - Febrile neutropenia [Unknown]
  - Neutropenic colitis [Unknown]
